FAERS Safety Report 12240996 (Version 1)
Quarter: 2016Q2

REPORT INFORMATION
  Report Type: Spontaneous
  Country: None (occurrence: None)
  Receive Date: 20160405
  Receipt Date: 20160405
  Transmission Date: 20160815
  Serious: Yes (Disabling)
  Sender: FDA-Public Use
  Company Number: None

PATIENT
  Sex: Male

DRUGS (3)
  1. OLD SPICE WILD COLLECTION WOLFTHORN INVISIBLE [Suspect]
     Active Substance: ALUMINUM ZIRCONIUM TRICHLOROHYDREX GLY
     Route: 061
  2. OLD SPICE WILD COLLECTION BEARGLOVE INVISIBLE [Suspect]
     Active Substance: ALUMINUM ZIRCONIUM TRICHLOROHYDREX GLY
     Route: 061
  3. OLD SPICE ANTIPERSPIRANT-DEODORANT + BODY SPRAY [Suspect]
     Active Substance: ALUMINUM ZIRCONIUM TRICHLOROHYDREX GLY
     Route: 061

REACTIONS (11)
  - Crying [None]
  - Skin fissures [None]
  - Impaired work ability [None]
  - Mobility decreased [None]
  - Wound [None]
  - Rash [None]
  - Secretion discharge [None]
  - Axillary pain [None]
  - Skin haemorrhage [None]
  - Skin irritation [None]
  - Skin injury [None]
